FAERS Safety Report 7240291-5 (Version None)
Quarter: 2011Q1

REPORT INFORMATION
  Report Type: 
  Country: None (occurrence: None)
  Receive Date: 20110124
  Receipt Date: 20110112
  Transmission Date: 20110831
  Serious: Yes (Hospitalization, Other)
  Sender: FDA-Public Use
  Company Number: PHHO2010IT18877

PATIENT
  Sex: Male
  Weight: 71 kg

DRUGS (11)
  1. BLINDED NO TREATMENT RECEIVED [Suspect]
     Dosage: DOUBLE BLIND
     Route: 048
     Dates: end: 20101212
  2. BLINDED ENALAPRIL [Suspect]
     Dosage: DOUBLE BLIND
     Route: 048
     Dates: end: 20101212
  3. BLINDED ALISKIREN [Suspect]
     Dosage: DOUBLE BLIND
     Route: 048
     Dates: end: 20101212
  4. BISOPROLOL [Concomitant]
     Indication: CARDIAC FAILURE
  5. WARFARIN [Concomitant]
     Indication: ATRIAL FIBRILLATION
  6. INSULIN [Concomitant]
     Indication: DIABETES MELLITUS
  7. ALISKIREN [Suspect]
     Indication: CARDIAC FAILURE
     Dosage: UNK
     Route: 048
     Dates: start: 20100414
  8. COMPARATOR ENALAPRIL [Suspect]
     Indication: CARDIAC FAILURE
     Dosage: UNK
     Route: 048
     Dates: start: 20100414
  9. CLOPIDOGREL [Concomitant]
     Dosage: UNK
  10. DIGOXIN [Concomitant]
     Indication: ATRIAL FIBRILLATION
  11. FRUSEMIDE [Concomitant]
     Indication: CARDIAC FAILURE

REACTIONS (9)
  - HYPOTENSION [None]
  - FATIGUE [None]
  - DYSPNOEA [None]
  - ORTHOPNOEA [None]
  - DISEASE PROGRESSION [None]
  - CARDIAC FAILURE [None]
  - ANAEMIA [None]
  - ATRIAL FIBRILLATION [None]
  - OEDEMA PERIPHERAL [None]
